FAERS Safety Report 8777037 (Version 1)
Quarter: 2012Q4

REPORT INFORMATION
  Report Type: 
  Country: DE (occurrence: DE)
  Receive Date: 20120911
  Receipt Date: 20120911
  Transmission Date: 20130627
  Serious: Yes (Hospitalization)
  Sender: FDA-Public Use
  Company Number: PHHY2012DE078641

PATIENT
  Age: 71 Year
  Sex: Female

DRUGS (9)
  1. SANDOSTATIN LAR [Suspect]
     Indication: PANCREATIC NEUROENDOCRINE TUMOUR
     Dosage: 20 mg,daily
     Route: 030
     Dates: start: 20120416
  2. SUTENT [Suspect]
     Indication: PANCREATIC NEUROENDOCRINE TUMOUR
     Dosage: 75 mg, daily
     Route: 048
     Dates: start: 201207, end: 201208
  3. L-THYROXINE [Concomitant]
     Dosage: 75 ug, daily
     Route: 048
  4. METOPROLOL [Concomitant]
     Dosage: 190 mg, daily
     Route: 048
  5. EXFORGE HCT [Concomitant]
     Route: 048
  6. MOXONIDINE [Concomitant]
     Dosage: 0.4 mg, daily
     Route: 048
  7. PANTOZOL [Concomitant]
     Dosage: 80 mg, daily
     Route: 048
  8. ACETYLSALICYLIC ACID [Concomitant]
     Dosage: 100 mg, daily
     Route: 048
  9. INSULIN [Concomitant]
     Route: 058

REACTIONS (1)
  - Cardiovascular insufficiency [Recovering/Resolving]
